FAERS Safety Report 6415984-X (Version None)
Quarter: 2009Q4

REPORT INFORMATION
  Report Type: 
  Country: None (occurrence: None)
  Receive Date: 20091022
  Receipt Date: 20091007
  Transmission Date: 20100525
  Serious: Yes (Hospitalization, Other)
  Sender: FDA-Public Use
  Company Number: AUR-APL-2009-00844

PATIENT
  Age: 71 Year
  Sex: Female

DRUGS (3)
  1. CIPROFLOXACIN [Suspect]
     Indication: PNEUMONIA
     Dosage: 1G, DAILY
  2. AMIODARONE HCL [Suspect]
     Indication: ATRIAL FIBRILLATION
     Dosage: 900MG, DAILY, IV
     Route: 042
  3. CLARITHROMYCIN [Suspect]
     Indication: PNEUMONIA
     Dosage: 1G - DAILY

REACTIONS (7)
  - ACUTE RESPIRATORY FAILURE [None]
  - ATRIAL FIBRILLATION [None]
  - BRADYCARDIA [None]
  - DRUG INTERACTION [None]
  - HAEMODYNAMIC INSTABILITY [None]
  - PNEUMONIA [None]
  - VENTRICULAR TACHYCARDIA [None]
